FAERS Safety Report 7890054-2 (Version None)
Quarter: 2011Q4

REPORT INFORMATION
  Report Type: 
  Country: None (occurrence: None)
  Receive Date: 20111103
  Receipt Date: 20111102
  Transmission Date: 20120403
  Serious: Yes (Death, Other)
  Sender: FDA-Public Use
  Company Number: US-ROCHE-1008874

PATIENT
  Sex: Female

DRUGS (2)
  1. BONIVA [Suspect]
     Indication: OSTEOPOROSIS
     Dates: start: 20050101, end: 20090101
  2. FOSAMAX [Suspect]
     Indication: OSTEOPOROSIS
     Dates: start: 19980101, end: 20090101

REACTIONS (5)
  - LOW TURNOVER OSTEOPATHY [None]
  - FEMUR FRACTURE [None]
  - ANXIETY [None]
  - EMOTIONAL DISTRESS [None]
  - DEATH [None]
